FAERS Safety Report 4990955-9 (Version None)
Quarter: 2006Q2

REPORT INFORMATION
  Report Type: 
  Country: None (occurrence: None)
  Receive Date: 20060503
  Receipt Date: 20050414
  Transmission Date: 20061013
  Serious: Yes (Disabling)
  Sender: FDA-Public Use
  Company Number: US-MERCK-0504USA02783

PATIENT
  Age: 35 Year
  Sex: Female
  Weight: 89 kg

DRUGS (3)
  1. VIOXX [Suspect]
     Indication: ARTHRALGIA
     Route: 048
     Dates: start: 20000701, end: 20030401
  2. MESTINON [Concomitant]
     Route: 065
  3. ELAVIL [Concomitant]
     Route: 065

REACTIONS (3)
  - FIBROMYALGIA [None]
  - HYPERTENSION [None]
  - MYASTHENIA GRAVIS [None]
